FAERS Safety Report 5633047-8 (Version None)
Quarter: 2008Q1

REPORT INFORMATION
  Report Type: 
  Country: None (occurrence: None)
  Receive Date: 20080214
  Receipt Date: 20080207
  Transmission Date: 20080703
  Serious: Yes (Death, Hospitalization, Other)
  Sender: FDA-Public Use
  Company Number: 2008US000290

PATIENT
  Age: 46 Year
  Sex: Male

DRUGS (2)
  1. PROGRAF [Suspect]
     Indication: RENAL TRANSPLANT
     Dosage: ORAL
     Route: 048
     Dates: end: 20070701
  2. CELLCEPT [Concomitant]

REACTIONS (12)
  - COMPLICATIONS OF TRANSPLANTED KIDNEY [None]
  - FUNGAL INFECTION [None]
  - GRAFT DYSFUNCTION [None]
  - GRAFT THROMBOSIS [None]
  - HYPOVOLAEMIC SHOCK [None]
  - PERIPHERAL ARTERY ANEURYSM [None]
  - POSTOPERATIVE WOUND COMPLICATION [None]
  - POSTOPERATIVE WOUND INFECTION [None]
  - SEPSIS [None]
  - TRANSPLANT REJECTION [None]
  - VASCULAR PSEUDOANEURYSM [None]
  - WOUND HAEMORRHAGE [None]
